FAERS Safety Report 10169798 (Version 1)
Quarter: 2014Q2

REPORT INFORMATION
  Report Type: Spontaneous
  Country: BR (occurrence: BR)
  Receive Date: 20140513
  Receipt Date: 20140513
  Transmission Date: 20141212
  Serious: Yes (Hospitalization, Other)
  Sender: FDA-Public Use
  Company Number: BR-ABBVIE-14P-020-1236616-00

PATIENT
  Age: 44 Year
  Sex: Male
  Weight: 52 kg

DRUGS (7)
  1. HUMIRA [Suspect]
     Indication: ANKYLOSING SPONDYLITIS
     Route: 058
     Dates: start: 20131002, end: 201312
  2. HUMIRA [Suspect]
     Route: 058
     Dates: start: 20140417
  3. PARACETAMOL [Concomitant]
     Indication: SPINAL DISORDER
     Dosage: TWICE DAILY
     Route: 048
     Dates: start: 2013
  4. PARACETAMOL [Concomitant]
     Indication: PAIN
  5. INDOCID [Concomitant]
     Indication: SPINAL DISORDER
     Dosage: ONCE A DAY
     Route: 048
     Dates: start: 201312
  6. INDOCID [Concomitant]
     Indication: PAIN
  7. CODEIN [Concomitant]
     Indication: SPINAL DISORDER

REACTIONS (3)
  - Immunodeficiency [Unknown]
  - Tuberculosis [Recovering/Resolving]
  - Pyrexia [Unknown]
